FAERS Safety Report 7247692-X (Version None)
Quarter: 2011Q1

REPORT INFORMATION
  Report Type: 
  Country: None (occurrence: None)
  Receive Date: 20110127
  Receipt Date: 20110117
  Transmission Date: 20110831
  Serious: Yes (Hospitalization, Other)
  Sender: FDA-Public Use
  Company Number: US-JNJFOC-20110105192

PATIENT
  Sex: Female

DRUGS (17)
  1. DOXIL [Suspect]
     Indication: ADJUVANT THERAPY
     Dosage: CYCLES 1-4
     Route: 042
  2. FLUNISOLIDE [Concomitant]
     Indication: PRODUCT USED FOR UNKNOWN INDICATION
     Route: 065
  3. ATENOLOL [Concomitant]
     Indication: PRODUCT USED FOR UNKNOWN INDICATION
     Route: 065
  4. MULTI-VITAMINS [Concomitant]
     Indication: MEDICAL DIET
     Route: 065
  5. ENALAPRIL [Concomitant]
     Indication: PRODUCT USED FOR UNKNOWN INDICATION
     Route: 065
  6. MINERAL SUPPLEMENT [Concomitant]
     Indication: MEDICAL DIET
     Route: 065
  7. PLAVIX [Concomitant]
     Indication: PRODUCT USED FOR UNKNOWN INDICATION
     Route: 065
  8. PRILOSEC [Concomitant]
     Indication: HIATUS HERNIA
     Route: 065
  9. MAGNESIUM [Concomitant]
     Indication: MEDICAL DIET
     Route: 048
  10. DOXIL [Suspect]
     Indication: OVARIAN EPITHELIAL CANCER
     Dosage: CYCLES 1-4
     Route: 042
  11. LASIX [Concomitant]
     Indication: PRODUCT USED FOR UNKNOWN INDICATION
     Route: 065
  12. LOVAZA [Concomitant]
     Indication: MEDICAL DIET
     Route: 065
  13. ZETIA [Concomitant]
     Indication: PRODUCT USED FOR UNKNOWN INDICATION
     Route: 065
  14. ASPIRIN [Concomitant]
     Indication: PRODUCT USED FOR UNKNOWN INDICATION
     Route: 065
  15. VITAMIN D [Concomitant]
     Indication: PRODUCT USED FOR UNKNOWN INDICATION
     Route: 065
  16. NORVASC [Concomitant]
     Indication: PRODUCT USED FOR UNKNOWN INDICATION
     Route: 065
  17. CAPHOSOL [Concomitant]
     Indication: PRODUCT USED FOR UNKNOWN INDICATION
     Route: 065

REACTIONS (2)
  - CORONARY ARTERIAL STENT INSERTION [None]
  - OVARIAN CANCER RECURRENT [None]
